FAERS Safety Report 11112833 (Version 1)
Quarter: 2015Q2

REPORT INFORMATION
  Report Type: Spontaneous
  Country: IN (occurrence: None)
  Receive Date: 20150512
  Receipt Date: 20150512
  Transmission Date: 20150821
  Serious: Yes (Death)
  Sender: FDA-Public Use
  Company Number: FK201502170

PATIENT
  Age: 21 Year
  Sex: Female

DRUGS (1)
  1. METHOTREXATE (MANUFACTURER UNKNOWN) (METHOTREXATE) (METHOTREXATE) [Suspect]
     Active Substance: METHOTREXATE
     Indication: JUVENILE IDIOPATHIC ARTHRITIS
     Dosage: 15 MG, 1 IN 1 WK

REACTIONS (11)
  - Lymphadenopathy [None]
  - Tachycardia [None]
  - Cardiomegaly [None]
  - Arthropathy [None]
  - Anaplastic large-cell lymphoma [None]
  - Cough [None]
  - Pericardial effusion [None]
  - Pyrexia [None]
  - Condition aggravated [None]
  - Dyspnoea [None]
  - Pleural effusion [None]
